FAERS Safety Report 13897828 (Version 4)
Quarter: 2017Q3

REPORT INFORMATION
  Report Type: Report from Study
  Country: IE (occurrence: IE)
  Receive Date: 20170823
  Receipt Date: 20170921
  Transmission Date: 20171127
  Serious: Yes (Hospitalization)
  Sender: FDA-Public Use
  Company Number: IE-PFIZER INC-2017358346

PATIENT
  Age: 37 Year
  Sex: Female
  Weight: 47 kg

DRUGS (11)
  1. DAKTARIN /00310801/ [Concomitant]
     Active Substance: MICONAZOLE NITRATE
     Indication: FUNGAL SKIN INFECTION
     Dosage: 1 TABLET, 2XDAY
     Route: 061
     Dates: start: 20170710
  2. CUBITAN [Concomitant]
     Indication: SUPPLEMENTATION THERAPY
     Dosage: 1 TABLET, 2X/DAY
     Route: 048
     Dates: start: 20170801
  3. PACLITAXEL. [Suspect]
     Active Substance: PACLITAXEL
     Indication: OVARIAN CANCER
     Dosage: 113 MG, WEEKLY
     Route: 042
     Dates: start: 20170811
  4. ORAMORPH [Concomitant]
     Active Substance: MORPHINE SULFATE
     Indication: PAIN
     Dosage: 5 MG, UNK 2-4 HOURLY, AS REQUIRED
     Route: 048
     Dates: start: 20170810
  5. NO SUBJECT DRUG [Suspect]
     Active Substance: UNSPECIFIED INGREDIENT
     Dosage: NO DOSE GIVEN
  6. ENOXAPARIN [Concomitant]
     Active Substance: ENOXAPARIN
     Indication: THROMBOSIS PROPHYLAXIS
     Dosage: 40 MG, 1X/DAY
     Route: 058
     Dates: start: 20170801, end: 20170811
  7. DIFENE [Concomitant]
     Active Substance: DICLOFENAC SODIUM
     Indication: PAIN
     Dosage: 100 MG, 16 DEGREES, HOURLY
     Route: 054
     Dates: start: 20170804
  8. CARBOPLATIN. [Suspect]
     Active Substance: CARBOPLATIN
     Indication: OVARIAN CANCER
     Dosage: 816 MG, UNK (3 WEEKLY)
     Route: 042
     Dates: start: 20170811
  9. LACTULOSE. [Concomitant]
     Active Substance: LACTULOSE
     Indication: LAXATIVE SUPPORTIVE CARE
     Dosage: 10 ML, 2X/DAY, AS REQUIRED
     Route: 048
     Dates: start: 20170802
  10. DAKTARIN /00310801/ [Concomitant]
     Active Substance: MICONAZOLE NITRATE
     Indication: PSORIASIS
  11. PANTOPRAZOLE [Concomitant]
     Active Substance: PANTOPRAZOLE
     Indication: ANTACID THERAPY
     Dosage: 40 MG, 1X/DAY
     Route: 048
     Dates: start: 20170802

REACTIONS (4)
  - Vomiting [Recovered/Resolved]
  - Tachycardia [Recovered/Resolved]
  - Pyrexia [Recovered/Resolved]
  - Lethargy [Recovered/Resolved]

NARRATIVE: CASE EVENT DATE: 20170816
